FAERS Safety Report 21486433 (Version 2)
Quarter: 2023Q2

REPORT INFORMATION
  Report Type: Report from Study
  Country: CA (occurrence: CA)
  Receive Date: 20221020
  Receipt Date: 20230419
  Transmission Date: 20230721
  Serious: Yes (Hospitalization, Other)
  Sender: FDA-Public Use
  Company Number: CA-UCBSA-2022060486

PATIENT
  Sex: Female

DRUGS (2)
  1. BRIVARACETAM [Suspect]
     Active Substance: BRIVARACETAM
     Indication: Partial seizures
     Dosage: 50 MILLIGRAM, 2X/DAY (BID)
     Route: 048
     Dates: start: 20181101
  2. CLOBAZAM [Concomitant]
     Active Substance: CLOBAZAM
     Indication: Product used for unknown indication
     Dosage: UNK

REACTIONS (10)
  - Seizure [Recovered/Resolved]
  - Head injury [Unknown]
  - Petit mal epilepsy [Recovered/Resolved]
  - Brain injury [Unknown]
  - Generalised tonic-clonic seizure [Recovered/Resolved]
  - Fall [Unknown]
  - Concussion [Recovered/Resolved]
  - Pain [Unknown]
  - Skin haemorrhage [Unknown]
  - Heavy menstrual bleeding [Unknown]

NARRATIVE: CASE EVENT DATE: 20210101
